FAERS Safety Report 24616466 (Version 2)
Quarter: 2025Q1

REPORT INFORMATION
  Report Type: Spontaneous
  Country: JP (occurrence: JP)
  Receive Date: 20241114
  Receipt Date: 20250121
  Transmission Date: 20250409
  Serious: Yes (Death)
  Sender: AMGEN
  Company Number: JP-KYOWAKIRIN-2024KK025050

PATIENT
  Age: 74 Year
  Sex: Female

DRUGS (3)
  1. ROMIPLOSTIM [Suspect]
     Active Substance: ROMIPLOSTIM
     Indication: Aplastic anaemia
     Route: 058
  2. CYCLOSPORINE [Concomitant]
     Active Substance: CYCLOSPORINE
     Indication: Product used for unknown indication
     Route: 065
  3. ATGAM [Concomitant]
     Active Substance: EQUINE THYMOCYTE IMMUNE GLOBULIN
     Indication: Product used for unknown indication
     Route: 065

REACTIONS (1)
  - Infection [Fatal]
